FAERS Safety Report 12691232 (Version 1)
Quarter: 2016Q3

REPORT INFORMATION
  Report Type: Spontaneous
  Country: FR (occurrence: FR)
  Receive Date: 20160826
  Receipt Date: 20160826
  Transmission Date: 20161109
  Serious: Yes (Hospitalization)
  Sender: FDA-Public Use
  Company Number: FR-MYLANLABS-2016M1035171

PATIENT

DRUGS (11)
  1. TRIFLUCAN [Concomitant]
     Active Substance: FLUCONAZOLE
     Dosage: UNK
     Route: 042
     Dates: start: 20160512, end: 20160517
  2. NUBAIN [Concomitant]
     Active Substance: NALBUPHINE HYDROCHLORIDE
     Indication: PAIN
     Dosage: UNK
     Route: 042
     Dates: start: 20160425, end: 20160504
  3. TRIFLUCAN [Concomitant]
     Active Substance: FLUCONAZOLE
     Indication: ANTIBIOTIC THERAPY
     Dosage: 2 MG/ML, UNK
     Route: 042
     Dates: start: 20160422, end: 20160501
  4. ROCEPHINE [Concomitant]
     Active Substance: CEFTRIAXONE SODIUM
     Indication: ANTIBIOTIC THERAPY
     Dosage: 1 G, UNK
     Route: 042
     Dates: start: 20160421, end: 20160422
  5. DOLIPRANE [Concomitant]
     Active Substance: ACETAMINOPHEN
     Indication: PAIN
     Dosage: 500 MG, QID
     Route: 048
     Dates: start: 20160425, end: 20160523
  6. VANCOMYCINE SANDOZ [Concomitant]
     Active Substance: VANCOMYCIN
     Indication: ANTIBIOTIC THERAPY
     Dosage: UNK
     Route: 042
     Dates: start: 20160511, end: 20160517
  7. PIPERACILLIN AND TAZOBACTAM [Suspect]
     Active Substance: PIPERACILLIN SODIUM\TAZOBACTAM SODIUM
     Indication: ANTIBIOTIC THERAPY
     Dosage: 2.5 G, TID
     Route: 042
     Dates: start: 20160422, end: 20160512
  8. AMIKACIN [Concomitant]
     Active Substance: AMIKACIN
     Indication: ANTIBIOTIC THERAPY
     Dosage: 430 MG, UNK
     Route: 042
     Dates: start: 20160421, end: 20160422
  9. FLAGYL [Concomitant]
     Active Substance: METRONIDAZOLE\METRONIDAZOLE HYDROCHLORIDE
     Indication: ANTIBIOTIC THERAPY
     Dosage: 500 MG, UNK
     Route: 042
     Dates: start: 20160421, end: 20160422
  10. FLAGYL [Concomitant]
     Active Substance: METRONIDAZOLE\METRONIDAZOLE HYDROCHLORIDE
     Indication: ANTIBIOTIC THERAPY
     Dosage: UNK
     Route: 048
     Dates: start: 20160512, end: 20160519
  11. AMIKACIN [Concomitant]
     Active Substance: AMIKACIN
     Dosage: UNK

REACTIONS (1)
  - Histiocytosis haematophagic [Recovered/Resolved]

NARRATIVE: CASE EVENT DATE: 20160513
